FAERS Safety Report 4902064-5 (Version None)
Quarter: 2006Q1

REPORT INFORMATION
  Report Type: 
  Country: None (occurrence: None)
  Receive Date: 20060206
  Receipt Date: 20060131
  Transmission Date: 20060701
  Serious: Yes (Disabling, Other)
  Sender: FDA-Public Use
  Company Number: US-GLAXOSMITHKLINE-A0592116A

PATIENT
  Sex: Female

DRUGS (1)
  1. PAXIL [Suspect]
     Indication: DRUG USE FOR UNKNOWN INDICATION
     Route: 065

REACTIONS (25)
  - AGGRESSION [None]
  - ANGER [None]
  - ANXIETY [None]
  - DEPRESSION [None]
  - DIARRHOEA [None]
  - DISABILITY [None]
  - DISSOCIATION [None]
  - DIZZINESS [None]
  - DRUG WITHDRAWAL SYNDROME [None]
  - DYSKINESIA [None]
  - FEELING ABNORMAL [None]
  - FEELING OF DESPAIR [None]
  - HEADACHE [None]
  - HOMICIDAL IDEATION [None]
  - HOT FLUSH [None]
  - INFLUENZA [None]
  - MALAISE [None]
  - MENTAL IMPAIRMENT [None]
  - NAUSEA [None]
  - NERVOUS SYSTEM DISORDER [None]
  - PANIC ATTACK [None]
  - PARAESTHESIA [None]
  - RESTLESSNESS [None]
  - SUICIDAL IDEATION [None]
  - VOMITING [None]
